FAERS Safety Report 8957504 (Version 2)
Quarter: 2013Q1

REPORT INFORMATION
  Report Type: Report from Study
  Country: JP (occurrence: JP)
  Receive Date: 20121210
  Receipt Date: 20130205
  Transmission Date: 20140127
  Serious: Yes (Disabling)
  Sender: FDA-Public Use
  Company Number: JP-009507513-1212JPN002873

PATIENT
  Age: 82 Year
  Sex: Male

DRUGS (14)
  1. ZOLINZA CAPSULES 100MG [Suspect]
     Indication: ADULT T-CELL LYMPHOMA/LEUKAEMIA
     Dosage: 300 MG, QD
     Route: 048
     Dates: start: 20120208, end: 20120213
  2. ZOLINZA CAPSULES 100MG [Suspect]
     Dosage: 300 MG, BID
     Route: 048
     Dates: end: 20120219
  3. ZOLINZA CAPSULES 100MG [Suspect]
     Dosage: 300 MG, BID
     Route: 048
     Dates: end: 20120226
  4. ZOLINZA CAPSULES 100MG [Suspect]
     Dosage: DOSAGE IS UNCERTAIN DURING A DAY
     Route: 048
     Dates: end: 20120306
  5. LANSOPRAZOLE [Concomitant]
     Indication: GASTROOESOPHAGEAL REFLUX DISEASE
     Dosage: 15 MG, QD
     Route: 048
  6. D-ALPHA [Concomitant]
     Indication: OSTEOPOROSIS
     Dosage: 0.25 MG, QD
     Route: 048
  7. MUCOSOLATE [Concomitant]
     Indication: ASTHMA
     Dosage: 45 MG, QD
     Route: 048
  8. ADOAIR [Concomitant]
     Indication: ASTHMA
     Dosage: 1 DF, BID
     Route: 055
  9. GLORIAMIN [Concomitant]
     Indication: PROPHYLAXIS
     Dosage: 1.5 G, BID
     Route: 048
  10. ALLEGRA [Concomitant]
     Indication: URTICARIA
     Dosage: 60 MG, BID
     Route: 048
  11. ITRACONAZOLE [Concomitant]
     Indication: FUNGAL SKIN INFECTION
     Dosage: 200 MG, QD
     Route: 048
  12. BUFFERIN [Concomitant]
     Indication: ANGINA PECTORIS
     Dosage: 81 MG, QD
     Route: 048
  13. FEBURIC [Concomitant]
     Indication: GOUT
     Dosage: 15 MG, QD
     Route: 048
  14. LEUPLIN [Concomitant]
     Indication: PROSTATE CANCER
     Dosage: 11.25 MG, BIW
     Route: 058

REACTIONS (7)
  - Sepsis [Recovered/Resolved]
  - Renal impairment [Recovering/Resolving]
  - Hyperuricaemia [Not Recovered/Not Resolved]
  - Malaise [Recovered/Resolved]
  - Platelet count decreased [Recovered/Resolved]
  - Blood glucose increased [Not Recovered/Not Resolved]
  - Decreased appetite [Recovered/Resolved]
